FAERS Safety Report 4759858-9 (Version None)
Quarter: 2005Q3

REPORT INFORMATION
  Report Type: 
  Country: None (occurrence: None)
  Receive Date: 20050831
  Receipt Date: 20050831
  Transmission Date: 20060218
  Serious: Yes (Disabling, Other)
  Sender: FDA-Public Use
  Company Number: None

PATIENT
  Age: 45 Year
  Sex: Female
  Weight: 48.9885 kg

DRUGS (1)
  1. PREDNISONE [Suspect]
     Indication: COLITIS ULCERATIVE
     Dosage: 40 MG. DAILY PO
     Route: 048

REACTIONS (10)
  - ALOPECIA [None]
  - ARTHRALGIA [None]
  - CONTUSION [None]
  - DYSPEPSIA [None]
  - MOUTH ULCERATION [None]
  - MYALGIA [None]
  - PALATAL DISORDER [None]
  - SENSITIVITY OF TEETH [None]
  - ULCER [None]
  - WEIGHT INCREASED [None]
